FAERS Safety Report 7237625-4 (Version None)
Quarter: 2011Q1

REPORT INFORMATION
  Report Type: 
  Country: None (occurrence: None)
  Receive Date: 20110112
  Receipt Date: 20101215
  Transmission Date: 20110831
  Serious: Yes (Other)
  Sender: FDA-Public Use
  Company Number: GB-021587

PATIENT
  Age: 72 Year
  Sex: Male

DRUGS (2)
  1. CHLORAMBUCIL (UNKNOWN) [Suspect]
     Indication: CHRONIC LYMPHOCYTIC LEUKAEMIA
     Dosage: (10 MG/M2, 10 MG/M2 PER DAY) ORAL
     Route: 048
     Dates: start: 20101108
  2. ONDANSETRON HYDROCHLORIDE (UNKNOWN) [Concomitant]

REACTIONS (1)
  - EXTRAPYRAMIDAL DISORDER [None]
